FAERS Safety Report 6895345-X (Version None)
Quarter: 2010Q3

REPORT INFORMATION
  Report Type: 
  Country: None (occurrence: None)
  Receive Date: 20100730
  Receipt Date: 20100730
  Transmission Date: 20110219
  Serious: Yes (Hospitalization)
  Sender: FDA-Public Use
  Company Number: None

PATIENT
  Age: 55 Year
  Sex: Male

DRUGS (2)
  1. VANCOMYCIN [Suspect]
     Indication: ENDOCARDITIS
     Dosage: 1000 MG PRN IV
     Route: 042
     Dates: start: 20091115, end: 20091221
  2. GENTAMICIN [Suspect]
     Indication: ENDOCARDITIS
     Dates: start: 20091115

REACTIONS (4)
  - CLOSTRIDIUM DIFFICILE COLITIS [None]
  - HAEMODIALYSIS [None]
  - RENAL FAILURE [None]
  - SMALL INTESTINAL OBSTRUCTION [None]
